FAERS Safety Report 19924927 (Version 1)
Quarter: 2021Q4

REPORT INFORMATION
  Report Type: Spontaneous
  Country: US (occurrence: US)
  Receive Date: 20211006
  Receipt Date: 20211006
  Transmission Date: 20220303
  Serious: No
  Sender: FDA-Public Use
  Company Number: US-PERRIGO-21US002954

PATIENT
  Age: 54 Year
  Sex: Female
  Weight: 68.03 kg

DRUGS (7)
  1. NICOTINE POLACRILEX [Suspect]
     Active Substance: NICOTINE
     Indication: Smoking cessation therapy
     Dosage: 2 MG, PRN, UP TO 20 TIMES DAILY
     Route: 002
     Dates: start: 20060613, end: 202003
  2. NICOTINE POLACRILEX [Suspect]
     Active Substance: NICOTINE
     Dosage: 2 MG, PRN, UP TO 20 TIMES DAILY
     Route: 002
     Dates: start: 202003, end: 202003
  3. NICOTINE POLACRILEX [Suspect]
     Active Substance: NICOTINE
     Dosage: 2 MG, PRN, UP TO 20 TIMES DAILY
     Route: 002
     Dates: start: 202003, end: 202003
  4. TRAMADOL [Concomitant]
     Active Substance: TRAMADOL
     Indication: Neuralgia
     Dosage: UNK, 2 TO 3 DAILY
     Route: 065
  5. RESTASIS [Concomitant]
     Active Substance: CYCLOSPORINE
     Indication: Dry eye
     Dosage: UNK
     Route: 065
     Dates: start: 2013
  6. ARTHROTEC [Concomitant]
     Active Substance: DICLOFENAC SODIUM\MISOPROSTOL
     Indication: Swelling
     Dosage: UNK
     Route: 065
     Dates: start: 2019
  7. PROPYLENE GLYCOL [Concomitant]
     Active Substance: PROPYLENE GLYCOL
     Indication: Dry eye
     Dosage: UNK
     Route: 065

REACTIONS (3)
  - Oral discomfort [Recovered/Resolved]
  - Oral mucosal erythema [Recovered/Resolved]
  - Inappropriate schedule of product administration [Recovered/Resolved]

NARRATIVE: CASE EVENT DATE: 20060613
